FAERS Safety Report 17284048 (Version 3)
Quarter: 2022Q1

REPORT INFORMATION
  Report Type: Report from Study
  Country: US (occurrence: US)
  Receive Date: 20200117
  Receipt Date: 20220107
  Transmission Date: 20220424
  Serious: Yes (Other)
  Sender: FDA-Public Use
  Company Number: US-PFIZER INC-2020018192

PATIENT

DRUGS (5)
  1. GEMTUZUMAB OZOGAMICIN [Suspect]
     Active Substance: GEMTUZUMAB OZOGAMICIN
     Dosage: 3 MG/M2, CYCLIC ON DAY 1
  2. MITOXANTRONE HYDROCHLORIDE [Suspect]
     Active Substance: MITOXANTRONE HYDROCHLORIDE
     Dosage: 18 MG/M2/DAY, CYCLIC (DAYS 1-3)
  3. CYTARABINE [Suspect]
     Active Substance: CYTARABINE
     Dosage: 2 G/M2/DAY, CYCLIC (DAY 1-5)
  4. CLADRIBINE [Suspect]
     Active Substance: CLADRIBINE
     Dosage: 5 MG/M2/DAY, CYCLIC (DAYS 1-5)
  5. GRANULOCYTE COLONY-STIMULATING FACTOR NOS [Suspect]
     Active Substance: GRANULOCYTE COLONY-STIMULATING FACTOR NOS
     Dosage: CYCLIC 300 OR 480 MUG/DAY (FOR WEIGHT {76 KG VS. }=76 KG; DAYS 0- 5)

REACTIONS (1)
  - Ventricular dysfunction [Unknown]
